FAERS Safety Report 17864449 (Version 1)
Quarter: 2020Q2

REPORT INFORMATION
  Report Type: Spontaneous
  Country: US (occurrence: US)
  Receive Date: 20200604
  Receipt Date: 20200604
  Transmission Date: 20200714
  Serious: Yes (Life-Threatening)
  Sender: FDA-Public Use
  Company Number: None

PATIENT
  Age: 70 Year
  Sex: Female
  Weight: 59 kg

DRUGS (11)
  1. AZTREONAM. [Concomitant]
     Active Substance: AZTREONAM
  2. HYDROXYCHLOROQUINE 200MG [Suspect]
     Active Substance: HYDROXYCHLOROQUINE
  3. CLOBAZAM. [Concomitant]
     Active Substance: CLOBAZAM
  4. HYDROXYCHLOROQUINE [Suspect]
     Active Substance: HYDROXYCHLOROQUINE
     Route: 048
     Dates: start: 20200511, end: 20200515
  5. LACOSAMIDE. [Concomitant]
     Active Substance: LACOSAMIDE
  6. HYDROXYCHLOROQUINE [Suspect]
     Active Substance: HYDROXYCHLOROQUINE
     Route: 048
     Dates: start: 20200522, end: 20200526
  7. DOXYCYCLINE. [Concomitant]
     Active Substance: DOXYCYCLINE
  8. ATORVASTATIN [Concomitant]
     Active Substance: ATORVASTATIN
  9. VANCOMYCIN [Concomitant]
     Active Substance: VANCOMYCIN
  10. TIGECYCLINE. [Concomitant]
     Active Substance: TIGECYCLINE
  11. LACOSAMIDE. [Suspect]
     Active Substance: LACOSAMIDE
     Indication: COVID-19
     Route: 048
     Dates: start: 20200511, end: 20200526

REACTIONS (3)
  - Pneumonia [None]
  - COVID-19 [None]
  - Liver function test increased [None]

NARRATIVE: CASE EVENT DATE: 20200527
